FAERS Safety Report 18511848 (Version 1)
Quarter: 2020Q4

REPORT INFORMATION
  Report Type: Spontaneous
  Country: PT (occurrence: PT)
  Receive Date: 20201117
  Receipt Date: 20201117
  Transmission Date: 20210114
  Serious: Yes (Other)
  Sender: FDA-Public Use
  Company Number: NVSC2020PT303179

PATIENT
  Age: 69 Year
  Sex: Female

DRUGS (3)
  1. PALBOCICLIB [Concomitant]
     Active Substance: PALBOCICLIB
     Indication: INVASIVE LOBULAR BREAST CARCINOMA
     Dosage: 125 MG
     Route: 065
     Dates: start: 20201109
  2. RIBOCICLIB. [Suspect]
     Active Substance: RIBOCICLIB
     Indication: INVASIVE LOBULAR BREAST CARCINOMA
     Dosage: 400 MG, QD (3 WEEKS ON/ 1 OFF)
     Route: 065
     Dates: start: 20191205, end: 202005
  3. LETROZOLE. [Concomitant]
     Active Substance: LETROZOLE
     Indication: INVASIVE LOBULAR BREAST CARCINOMA
     Dosage: UNK (ONCE A MONTH)
     Route: 065
     Dates: start: 20191113

REACTIONS (4)
  - Bone lesion [Unknown]
  - Hepatitis toxic [Unknown]
  - Depressed mood [Unknown]
  - Hepatitis [Unknown]

NARRATIVE: CASE EVENT DATE: 20201009
